FAERS Safety Report 10651326 (Version 1)
Quarter: 2014Q4

REPORT INFORMATION
  Report Type: Spontaneous
  Country: IT (occurrence: IT)
  Receive Date: 20141215
  Receipt Date: 20141215
  Transmission Date: 20150529
  Serious: Yes (Hospitalization)
  Sender: FDA-Public Use
  Company Number: IT-JNJFOC-20141207805

PATIENT
  Age: 34 Year
  Sex: Female

DRUGS (4)
  1. TORA-DOL [Suspect]
     Active Substance: KETOROLAC TROMETHAMINE
     Indication: HEADACHE
     Route: 030
     Dates: start: 20140507, end: 20140507
  2. OKI [Suspect]
     Active Substance: KETOPROFEN LYSINE
     Indication: HEADACHE
     Route: 048
     Dates: start: 20140507, end: 20140507
  3. ALMOGRAN [Suspect]
     Active Substance: ALMOTRIPTAN MALATE
     Indication: HEADACHE
     Route: 048
     Dates: start: 20140507, end: 20140507
  4. LAROXYL [Suspect]
     Active Substance: AMITRIPTYLINE
     Indication: HEADACHE
     Dosage: 10 DROPS
     Route: 048
     Dates: start: 20140507, end: 20140507

REACTIONS (4)
  - Medication error [Unknown]
  - Tachyarrhythmia [Recovered/Resolved]
  - Headache [Recovered/Resolved]
  - Abdominal pain upper [Recovered/Resolved]

NARRATIVE: CASE EVENT DATE: 20140507
